FAERS Safety Report 24049649 (Version 1)
Quarter: 2024Q3

REPORT INFORMATION
  Report Type: Spontaneous
  Country: US (occurrence: US)
  Receive Date: 20240704
  Receipt Date: 20240704
  Transmission Date: 20241017
  Serious: Yes (Life-Threatening, Hospitalization, Other)
  Sender: RANBAXY
  Company Number: US-SUN PHARMACEUTICAL INDUSTRIES LTD-2024R1-454257

PATIENT
  Sex: Male

DRUGS (1)
  1. FERROUS SULFATE [Suspect]
     Active Substance: FERROUS SULFATE
     Indication: Product used for unknown indication
     Route: 065

REACTIONS (6)
  - Foreign body aspiration [Unknown]
  - Abscess [Unknown]
  - Infectious pleural effusion [Unknown]
  - Respiratory failure [Unknown]
  - Septic shock [Unknown]
  - Cardiac arrest [Unknown]
